FAERS Safety Report 9771323 (Version 14)
Quarter: 2019Q3

REPORT INFORMATION
  Report Type: Report from Study
  Country: IT (occurrence: IT)
  Receive Date: 20131218
  Receipt Date: 20190704
  Transmission Date: 20191005
  Serious: Yes (Hospitalization, Other)
  Sender: FDA-Public Use
  Company Number: PHHY2013IT146571

PATIENT
  Age: 50 Year
  Sex: Female
  Weight: 50 kg

DRUGS (3)
  1. GILENYA [Suspect]
     Active Substance: FINGOLIMOD HYDROCHLORIDE
     Indication: MULTIPLE SCLEROSIS
     Dosage: 0.5 MG, QD
     Route: 048
     Dates: start: 20121206, end: 20131205
  2. SOLU-MEDROL [Concomitant]
     Active Substance: METHYLPREDNISOLONE SODIUM SUCCINATE
     Indication: MULTIPLE SCLEROSIS RELAPSE
     Dosage: 1000 MG/16 ML POWDER AND SOLVENT FOR INJECTABLE SOLUTION
     Route: 042
     Dates: start: 20131112, end: 20131115
  3. CITALOPRAM RATIOPHARM [Concomitant]
     Active Substance: CITALOPRAM HYDROBROMIDE
     Indication: DEPRESSION
     Dosage: 20 MG, QD
     Route: 048
     Dates: start: 20121214, end: 20131215

REACTIONS (21)
  - Abdominal pain [Recovered/Resolved]
  - Hypertension [Unknown]
  - Lipase increased [Unknown]
  - Amylase increased [Unknown]
  - Abdominal discomfort [Unknown]
  - Back pain [Unknown]
  - Pyelocaliectasis [Unknown]
  - Renal atrophy [Unknown]
  - Pyrexia [Unknown]
  - Pyelonephritis [Unknown]
  - Aspartate aminotransferase increased [Unknown]
  - Alanine aminotransferase increased [Unknown]
  - Adenocarcinoma pancreas [Not Recovered/Not Resolved]
  - Pancreatitis necrotising [Not Recovered/Not Resolved]
  - Nephrolithiasis [Unknown]
  - Cholecystitis chronic [Unknown]
  - Acute kidney injury [Unknown]
  - Herpes virus infection [Unknown]
  - Gastritis [Unknown]
  - Abdominal pain upper [Unknown]
  - Gamma-glutamyltransferase increased [Unknown]

NARRATIVE: CASE EVENT DATE: 20131120
